FAERS Safety Report 8493989-5 (Version None)
Quarter: 2012Q3

REPORT INFORMATION
  Report Type: 
  Country: None (occurrence: None)
  Receive Date: 20120709
  Receipt Date: 20120629
  Transmission Date: 20120928
  Serious: Yes (Death, Hospitalization)
  Sender: FDA-Public Use
  Company Number: US-BIOGENIDEC-2012BI023488

PATIENT
  Age: 61 Year
  Sex: Female

DRUGS (2)
  1. TYSABRI [Suspect]
     Indication: MULTIPLE SCLEROSIS
     Route: 042
     Dates: start: 20061009, end: 20070522
  2. TYSABRI [Suspect]
     Route: 042
     Dates: start: 20111116, end: 20120511

REACTIONS (4)
  - URINARY TRACT INFECTION [None]
  - RHABDOMYOLYSIS [None]
  - PNEUMONIA [None]
  - PSEUDOMONAS INFECTION [None]
